FAERS Safety Report 7715772-8 (Version None)
Quarter: 2011Q3

REPORT INFORMATION
  Report Type: 
  Country: None (occurrence: None)
  Receive Date: 20110812
  Receipt Date: 20110325
  Transmission Date: 20111222
  Serious: Yes (Other)
  Sender: FDA-Public Use
  Company Number: MEDI-0012982

PATIENT
  Age: 23 Month
  Sex: Female

DRUGS (2)
  1. SYNAGIS [Suspect]
     Dates: start: 20110209, end: 20110209
  2. SYNAGIS [Suspect]

REACTIONS (1)
  - HYPERSENSITIVITY [None]
